FAERS Safety Report 5533887-X (Version None)
Quarter: 2007Q4

REPORT INFORMATION
  Report Type: 
  Country: None (occurrence: None)
  Receive Date: 20071129
  Receipt Date: 20071113
  Transmission Date: 20080405
  Serious: Yes (Hospitalization)
  Sender: FDA-Public Use
  Company Number: 2006BI011569

PATIENT
  Age: 51 Year
  Sex: Female

DRUGS (4)
  1. AVONEX [Suspect]
     Indication: MULTIPLE SCLEROSIS
     Dosage: 30 UG;QW;IM
     Route: 030
     Dates: start: 20060701, end: 20060801
  2. SIMVAHEXAL [Concomitant]
  3. ZOLOFT [Concomitant]
  4. LORAZEPAM [Concomitant]

REACTIONS (24)
  - ACUTE HEPATIC FAILURE [None]
  - ANTINUCLEAR ANTIBODY POSITIVE [None]
  - AUTOIMMUNE HEPATITIS [None]
  - CHOLESTASIS [None]
  - COMA HEPATIC [None]
  - CYTOMEGALOVIRUS ANTIBODY POSITIVE [None]
  - DIALYSIS [None]
  - DRUG TOXICITY [None]
  - EPSTEIN-BARR VIRUS ANTIBODY POSITIVE [None]
  - GENERAL PHYSICAL HEALTH DETERIORATION [None]
  - HEPATIC CIRRHOSIS [None]
  - HEPATIC ENCEPHALOPATHY [None]
  - HEPATIC NECROSIS [None]
  - HEPATIC STEATOSIS [None]
  - HEPATITIS ALCOHOLIC [None]
  - INFLUENZA LIKE ILLNESS [None]
  - INTERNATIONAL NORMALISED RATIO INCREASED [None]
  - LIVER TRANSPLANT [None]
  - MULTIPLE SCLEROSIS [None]
  - NAUSEA [None]
  - PAIN IN EXTREMITY [None]
  - PHLEBOSCLEROSIS [None]
  - SOMNOLENCE [None]
  - VARICELLA ZOSTER VIRUS SEROLOGY POSITIVE [None]
